FAERS Safety Report 7374705-7 (Version None)
Quarter: 2011Q1

REPORT INFORMATION
  Report Type: 
  Country: None (occurrence: None)
  Receive Date: 20110325
  Receipt Date: 20100830
  Transmission Date: 20110831
  Serious: No
  Sender: FDA-Public Use
  Company Number: US-MYLANLABS-2010S1014986

PATIENT
  Age: 62 Year
  Sex: Female

DRUGS (21)
  1. BENTYL [Concomitant]
     Route: 048
     Dates: start: 19700101
  2. ESTROGENIC SUBSTANCE [Concomitant]
     Route: 048
     Dates: start: 19650101
  3. ATENOLOL [Concomitant]
     Route: 048
  4. THX [Concomitant]
     Route: 048
  5. METOLAZONE [Concomitant]
     Dosage: 30 MINUTES PRIOR TO LASIX
     Route: 048
  6. WARFARIN [Concomitant]
  7. NOVOLOG MIX 70/30 [Concomitant]
     Dosage: 70/30   14U QAM AND 9U QHS
     Route: 058
     Dates: start: 20100701
  8. PRILOSEC [Concomitant]
     Route: 048
     Dates: start: 20000101
  9. LASIX [Concomitant]
     Route: 048
     Dates: start: 20080101
  10. XANAX [Concomitant]
     Route: 048
  11. AMBIEN [Concomitant]
     Dosage: OFTEN 10MG QHS PRN
     Route: 048
  12. MUPIROCIN [Concomitant]
     Route: 061
  13. FENTANYL-100 [Suspect]
     Indication: PAIN
     Dosage: Q72H
     Route: 062
     Dates: start: 20100723
  14. POTASSIUM CHLORIDE [Concomitant]
     Dosage: (AKA 10MEQ)
     Route: 048
     Dates: start: 20060101
  15. SPIRONOLACTONE [Concomitant]
  16. MINITRAN [Concomitant]
  17. FENTANYL-100 [Suspect]
     Indication: NEUROPATHY PERIPHERAL
     Dosage: Q72H
     Route: 062
     Dates: start: 20100723
  18. DILAUDID [Concomitant]
     Dates: start: 20080101
  19. VITAMIN B-12 [Concomitant]
     Route: 048
  20. LIDOCAINE [Concomitant]
     Route: 061
  21. NITROSTAT [Concomitant]
     Indication: OESOPHAGEAL SPASM
     Dosage: ALSO FOR HICCUPS
     Route: 062
     Dates: start: 20070101

REACTIONS (2)
  - APPLICATION SITE IRRITATION [None]
  - APPLICATION SITE HYPERSENSITIVITY [None]
